FAERS Safety Report 9684855 (Version 2)
Quarter: 2013Q4

REPORT INFORMATION
  Report Type: Spontaneous
  Country: NO (occurrence: NO)
  Receive Date: 20131112
  Receipt Date: 20131114
  Transmission Date: 20140711
  Serious: Yes (Hospitalization, Other)
  Sender: FDA-Public Use
  Company Number: NO-009507513-1311NOR003573

PATIENT
  Age: 79 Year
  Sex: Female

DRUGS (4)
  1. FOSAMAX [Suspect]
     Indication: OSTEOPOROSIS
     Dosage: 70 MG, QW
     Route: 048
     Dates: start: 2001, end: 20131014
  2. RAMIPRIL [Concomitant]
     Dosage: 10 MG, QD
     Route: 048
  3. LERCANIDIPINE [Concomitant]
     Dosage: 10 MG, QD
     Route: 048
  4. LANZO [Concomitant]
     Dosage: 30 MG, QD
     Route: 048

REACTIONS (2)
  - Femur fracture [Recovering/Resolving]
  - Lenticular opacities [Not Recovered/Not Resolved]
